FAERS Safety Report 9008591 (Version 1)
Quarter: 2013Q1

REPORT INFORMATION
  Report Type: Spontaneous
  Country: US (occurrence: US)
  Receive Date: 20130111
  Receipt Date: 20130111
  Transmission Date: 20140127
  Serious: No
  Sender: FDA-Public Use
  Company Number: US-ASTRAZENECA-2013SE01405

PATIENT
  Age: 75 Year
  Sex: Female
  Weight: 50.8 kg

DRUGS (4)
  1. CRESTOR [Suspect]
     Indication: BLOOD PRESSURE
     Route: 048
     Dates: start: 20121211
  2. XANAX [Concomitant]
     Indication: NERVOUSNESS
  3. VITAMIN D [Concomitant]
     Indication: SUPPLEMENTATION THERAPY
  4. FISH OIL [Concomitant]

REACTIONS (2)
  - Abdominal pain [Not Recovered/Not Resolved]
  - Off label use [Unknown]
